FAERS Safety Report 4412827-0 (Version None)
Quarter: 2004Q3

REPORT INFORMATION
  Report Type: 
  Country: None (occurrence: None)
  Receive Date: 20040730
  Receipt Date: 20040730
  Transmission Date: 20050211
  Serious: Yes (Hospitalization)
  Sender: FDA-Public Use
  Company Number: None

PATIENT
  Age: 81 Year
  Sex: Male
  Weight: 86.2 kg

DRUGS (11)
  1. HYDROXYZINE [Suspect]
     Indication: AGITATION
     Dosage: 50 MG/M X 2
     Dates: start: 20040408
  2. FELODIPINE [Concomitant]
  3. DONEPEZIL HCL [Concomitant]
  4. ATENOLOL [Concomitant]
  5. POTASSIUM CHLORIDE [Concomitant]
  6. METOPROLOL [Concomitant]
  7. ASPIRIN [Concomitant]
  8. ACETAMINOPHEN [Concomitant]
  9. MULTI-VITAMIN [Concomitant]
  10. DIGOXIN [Concomitant]
  11. SODIUM CHLORIDE INJ [Concomitant]

REACTIONS (1)
  - LETHARGY [None]
